FAERS Safety Report 9462231 (Version 1)
Quarter: 2013Q3

REPORT INFORMATION
  Report Type: Spontaneous
  Country: US (occurrence: US)
  Receive Date: 20130816
  Receipt Date: 20130816
  Transmission Date: 20140515
  Serious: Yes (Other)
  Sender: FDA-Public Use
  Company Number: US-BAYER-2013-098630

PATIENT
  Age: 84 Year
  Sex: Female
  Weight: 68.03 kg

DRUGS (5)
  1. BAYER GENUINE ASPIRIN ORIGINAL STRENGTH [Suspect]
     Dosage: 1 DF, PRN
     Route: 048
     Dates: start: 1993
  2. TYLENOL [PARACETAMOL] [Concomitant]
  3. ATENOLOL [Concomitant]
  4. PANTOPRAZOLE [Concomitant]
     Dosage: 40 MG, UNK
  5. CALCIUM CITRATE [Concomitant]

REACTIONS (1)
  - Oesophagitis [Recovered/Resolved]
